FAERS Safety Report 9738476 (Version 1)
Quarter: 2013Q4

REPORT INFORMATION
  Report Type: Spontaneous
  Country: AU (occurrence: AU)
  Receive Date: 20131208
  Receipt Date: 20131208
  Transmission Date: 20140711
  Serious: Yes (Hospitalization)
  Sender: FDA-Public Use
  Company Number: AU-MYLANLABS-2013S1026928

PATIENT
  Age: 26 Year
  Sex: Female

DRUGS (4)
  1. SERTRALINE [Suspect]
     Indication: DEPRESSION
     Route: 065
  2. SERTRALINE [Interacting]
     Indication: DEPRESSION
     Route: 065
  3. RANITIDINE [Interacting]
     Indication: GASTROOESOPHAGEAL REFLUX DISEASE
     Route: 065
  4. METOCLOPRAMIDE [Concomitant]
     Indication: VOMITING IN PREGNANCY
     Route: 065

REACTIONS (2)
  - Drug-induced liver injury [Recovered/Resolved]
  - Drug interaction [Recovered/Resolved]
